FAERS Safety Report 13457350 (Version 1)
Quarter: 2017Q2

REPORT INFORMATION
  Report Type: Spontaneous
  Country: US (occurrence: US)
  Receive Date: 20170418
  Receipt Date: 20170418
  Transmission Date: 20170830
  Serious: Yes (Other)
  Sender: FDA-Public Use
  Company Number: None

PATIENT
  Age: 71 Year
  Sex: Male
  Weight: 112.5 kg

DRUGS (5)
  1. PRADAXA [Suspect]
     Active Substance: DABIGATRAN ETEXILATE MESYLATE
     Indication: ATRIAL FIBRILLATION
     Dosage: ?          QUANTITY:1 CAPSULE(S);?
     Route: 048
     Dates: start: 20170304, end: 20170418
  2. RISPERDAL [Concomitant]
     Active Substance: RISPERIDONE
  3. BUPROPION. [Concomitant]
     Active Substance: BUPROPION
  4. MULTIVITAMIN [Concomitant]
     Active Substance: VITAMINS
  5. BABY ASPIRIN [Concomitant]
     Active Substance: ASPIRIN

REACTIONS (1)
  - Haemorrhage urinary tract [None]

NARRATIVE: CASE EVENT DATE: 20170414
